FAERS Safety Report 7339121-2 (Version None)
Quarter: 2011Q1

REPORT INFORMATION
  Report Type: 
  Country: None (occurrence: None)
  Receive Date: 20110228
  Receipt Date: 20110210
  Transmission Date: 20110831
  Serious: Yes (Other)
  Sender: FDA-Public Use
  Company Number: 20110122

PATIENT
  Sex: Female

DRUGS (1)
  1. DEXAMETHASONE SODIUM PHOSPHATE [Suspect]
     Indication: INFLAMMATION
     Dosage: INTRAVENOUS
     Route: 042
     Dates: start: 20100601

REACTIONS (3)
  - DYSPNOEA [None]
  - DYSPHAGIA [None]
  - CARDIAC MURMUR [None]
